FAERS Safety Report 8478002-8 (Version None)
Quarter: 2012Q2

REPORT INFORMATION
  Report Type: 
  Country: None (occurrence: None)
  Receive Date: 20120629
  Receipt Date: 20120618
  Transmission Date: 20120825
  Serious: Yes (Other)
  Sender: FDA-Public Use
  Company Number: US-VERTEX PHARMACEUTICALS INC.-AE-2012-009119

PATIENT
  Sex: Female

DRUGS (8)
  1. RIBAVIRIN [Concomitant]
     Indication: HEPATITIS C
     Dates: start: 20120416
  2. PEG-INTRON [Concomitant]
     Indication: HEPATITIS C
     Dates: start: 20120416
  3. INCIVEK [Suspect]
     Route: 048
  4. PEG-INTRON [Concomitant]
  5. RIBAVIRIN [Concomitant]
  6. INCIVEK [Suspect]
     Indication: HEPATITIS C
     Route: 048
     Dates: start: 20120416
  7. BYETTA [Concomitant]
     Indication: TYPE 1 DIABETES MELLITUS
  8. METFORMIN HCL [Concomitant]
     Indication: TYPE 1 DIABETES MELLITUS

REACTIONS (4)
  - BLOOD GLUCOSE DECREASED [None]
  - BLOOD GLUCOSE INCREASED [None]
  - DIZZINESS [None]
  - NAUSEA [None]
